FAERS Safety Report 9183989 (Version 1)
Quarter: 2013Q1

REPORT INFORMATION
  Report Type: Spontaneous
  Country: US (occurrence: US)
  Receive Date: 20130322
  Receipt Date: 20130322
  Transmission Date: 20140127
  Serious: No
  Sender: FDA-Public Use
  Company Number: US-BRISTOL-MYERS SQUIBB COMPANY-16687121

PATIENT
  Age: 64 Year
  Sex: Male

DRUGS (3)
  1. ERBITUX [Suspect]
     Indication: HEAD AND NECK CANCER
     Dosage: 250MG/M2,THERAPY DATES:11JUN12,18JUN12,25JUN12,2JUL12,11JUL12,18JUL12.
     Route: 042
     Dates: start: 20120604
  2. CISPLATIN [Concomitant]
     Indication: HEAD AND NECK CANCER
     Route: 042
  3. 5-FLUOROURACIL [Concomitant]
     Indication: HEAD AND NECK CANCER
     Route: 042

REACTIONS (2)
  - Dermatitis [Unknown]
  - Malaise [Unknown]
